FAERS Safety Report 16376148 (Version 1)
Quarter: 2019Q2

REPORT INFORMATION
  Report Type: Report from Study
  Country: HR (occurrence: HR)
  Receive Date: 20190531
  Receipt Date: 20190531
  Transmission Date: 20190711
  Serious: Yes (Hospitalization, Other)
  Sender: FDA-Public Use
  Company Number: HR-ASTELLAS-2019US022824

PATIENT
  Age: 56 Year
  Sex: Male

DRUGS (18)
  1. TACROLIMUS. [Suspect]
     Active Substance: TACROLIMUS
     Indication: PROPHYLAXIS AGAINST TRANSPLANT REJECTION
     Dates: start: 20150826, end: 20151112
  2. AMOXICILLIN. [Concomitant]
     Active Substance: AMOXICILLIN
     Indication: CHRONIC OBSTRUCTIVE PULMONARY DISEASE
     Dosage: UNK UNK, UNKNOWN FREQ.
     Route: 065
     Dates: start: 20160119
  3. PEPTORAN                           /00550802/ [Concomitant]
     Indication: PROPHYLAXIS
     Route: 065
     Dates: start: 20151119
  4. TACROLIMUS. [Suspect]
     Active Substance: TACROLIMUS
  5. TACROLIMUS. [Suspect]
     Active Substance: TACROLIMUS
  6. CERTICAN [Suspect]
     Active Substance: EVEROLIMUS
     Dosage: 0.5 MG, ONCE DAILY
     Route: 048
  7. CERTICAN [Suspect]
     Active Substance: EVEROLIMUS
     Route: 048
     Dates: start: 20150826, end: 20151119
  8. CONTROLOC [Suspect]
     Active Substance: PANTOPRAZOLE SODIUM
     Indication: PROPHYLAXIS
     Route: 065
     Dates: start: 20150825, end: 20151112
  9. SINERSUL [Suspect]
     Active Substance: SULFAMETHOXAZOLE\TRIMETHOPRIM
     Indication: INFECTION PROPHYLAXIS
     Route: 065
     Dates: start: 20150827, end: 20151112
  10. VALCYTE [Suspect]
     Active Substance: VALGANCICLOVIR HYDROCHLORIDE
     Indication: INFECTION PROPHYLAXIS
     Route: 065
     Dates: start: 20150827, end: 20151112
  11. PHYSIOTENS [Concomitant]
     Active Substance: MOXONIDINE
     Indication: HYPERTENSION
     Dosage: 0.6 MG, UNKNOWN FREQ.
     Route: 065
  12. CERTICAN [Suspect]
     Active Substance: EVEROLIMUS
     Indication: PROPHYLAXIS AGAINST TRANSPLANT REJECTION
     Route: 048
  13. FURSEMID                           /00032601/ [Concomitant]
     Active Substance: FUROSEMIDE
     Indication: DIURETIC THERAPY
     Route: 065
     Dates: start: 20131101
  14. AZITHROMYCIN                       /00944303/ [Concomitant]
     Active Substance: AZITHROMYCIN ANHYDROUS
     Indication: CHRONIC OBSTRUCTIVE PULMONARY DISEASE
     Dosage: UNK UNK, UNKNOWN FREQ.
     Route: 065
     Dates: start: 20160119
  15. AMLOPIN                            /00972402/ [Concomitant]
     Indication: HYPERTENSION
     Route: 065
  16. NORVASC [Concomitant]
     Active Substance: AMLODIPINE BESYLATE
     Indication: HYPERTENSION
     Route: 065
     Dates: start: 20100101
  17. WARFARIN [Concomitant]
     Active Substance: WARFARIN
     Indication: PRODUCT USED FOR UNKNOWN INDICATION
     Dosage: UNK, UNKNOWN FREQ.
     Route: 065
  18. DECORTIN [Suspect]
     Active Substance: PREDNISONE
     Indication: PROPHYLAXIS AGAINST TRANSPLANT REJECTION
     Route: 065
     Dates: start: 20150825

REACTIONS (10)
  - Blood creatinine increased [Recovered/Resolved]
  - Blood creatinine increased [Recovered/Resolved]
  - Lymphocele [Not Recovered/Not Resolved]
  - C-reactive protein increased [Recovered/Resolved]
  - Lymphocele [Recovered/Resolved]
  - Deep vein thrombosis [Recovering/Resolving]
  - Blood creatinine increased [Recovered/Resolved]
  - Diabetes mellitus [Not Recovered/Not Resolved]
  - Pancytopenia [Recovering/Resolving]
  - Pneumonia [Recovered/Resolved]

NARRATIVE: CASE EVENT DATE: 20150922
